FAERS Safety Report 6490861-7 (Version None)
Quarter: 2009Q4

REPORT INFORMATION
  Report Type: 
  Country: None (occurrence: None)
  Receive Date: 20091211
  Receipt Date: 20091208
  Transmission Date: 20100525
  Serious: Yes (Death, Life-Threatening, Other)
  Sender: FDA-Public Use
  Company Number: BR-PFIZER INC-2009283645

PATIENT
  Age: 57 Year
  Sex: Female
  Weight: 70 kg

DRUGS (8)
  1. LINEZOLID [Suspect]
     Dosage: UNK, 2X/DAY, EVERY DAY
     Route: 042
     Dates: start: 20090921, end: 20090927
  2. CEFTRIAXONE [Concomitant]
     Dosage: UNK
     Route: 042
     Dates: start: 20090913, end: 20090918
  3. CLARITHROMYCIN [Concomitant]
     Dosage: UNK
     Route: 042
     Dates: start: 20090913, end: 20090918
  4. CEFEPIME [Concomitant]
     Dosage: UNK
     Route: 042
     Dates: start: 20090918, end: 20090925
  5. MEROPENEM [Concomitant]
     Dosage: UNK
     Route: 042
     Dates: start: 20090925
  6. NORADRENALINE [Concomitant]
     Dosage: UNK
     Route: 042
     Dates: start: 20090917
  7. HYDROCORTISONE [Concomitant]
     Dosage: UNK
     Dates: start: 20090913
  8. HEPARIN [Concomitant]
     Dosage: UNK
     Dates: start: 20090913

REACTIONS (3)
  - CARDIAC ARREST [None]
  - RENAL FAILURE [None]
  - SEPTIC SHOCK [None]
